FAERS Safety Report 6237721-4 (Version None)
Quarter: 2009Q2

REPORT INFORMATION
  Report Type: 
  Country: None (occurrence: None)
  Receive Date: 20090617
  Receipt Date: 20090609
  Transmission Date: 20091009
  Serious: Yes (Life-Threatening, Hospitalization)
  Sender: FDA-Public Use
  Company Number: CLOF-1000588

PATIENT
  Age: 3 Year
  Sex: Male

DRUGS (3)
  1. EVOLTRA (CLOFARABINE) SOLUTION FOR INFUSION [Suspect]
     Indication: ACUTE MYELOID LEUKAEMIA
     Dosage: 40 MG/M2, QDX5, INTRAVENOUS
     Route: 042
     Dates: start: 20090514, end: 20090518
  2. ENDOXAN (CYCLOPHOSPHAMIDE MONOHYDRATE) [Suspect]
     Indication: ACUTE MYELOID LEUKAEMIA
     Dosage: 340 MG/M2, QDX5, INTRAVENOUS
     Route: 042
     Dates: start: 20090514, end: 20090518
  3. ETOPOSIDE [Suspect]
     Indication: ACUTE MYELOID LEUKAEMIA
     Dosage: 100 MG/M2, QDX5, INTRAVENOUS
     Route: 042
     Dates: start: 20090514, end: 20090518

REACTIONS (5)
  - ABDOMINAL DISTENSION [None]
  - ACUTE PULMONARY OEDEMA [None]
  - COAGULATION FACTOR V LEVEL DECREASED [None]
  - PULMONARY HYPERTENSION [None]
  - VENOOCCLUSIVE LIVER DISEASE [None]
